FAERS Safety Report 8839861 (Version 2)
Quarter: 2012Q4

REPORT INFORMATION
  Report Type: Report from Study
  Country: JP (occurrence: JP)
  Receive Date: 20121015
  Receipt Date: 20121109
  Transmission Date: 20130627
  Serious: Yes (Death)
  Sender: FDA-Public Use
  Company Number: JP-UCBSA-068533

PATIENT
  Age: 25 Year
  Sex: Male
  Weight: 73 kg

DRUGS (19)
  1. E KEPPRA [Suspect]
     Indication: GRAND MAL CONVULSION
     Route: 048
     Dates: start: 20111130, end: 20111216
  2. E KEPPRA [Suspect]
     Indication: MYOCLONIC EPILEPSY
     Route: 048
     Dates: start: 20111130, end: 20111216
  3. E KEPPRA [Suspect]
     Indication: GRAND MAL CONVULSION
     Route: 048
     Dates: start: 20111117, end: 20111129
  4. E KEPPRA [Suspect]
     Indication: MYOCLONIC EPILEPSY
     Route: 048
     Dates: start: 20111117, end: 20111129
  5. E KEPPRA [Suspect]
     Indication: GRAND MAL CONVULSION
     Route: 048
     Dates: start: 20111110, end: 20111116
  6. E KEPPRA [Suspect]
     Indication: MYOCLONIC EPILEPSY
     Route: 048
     Dates: start: 20111110, end: 20111116
  7. E KEPPRA [Suspect]
     Indication: GRAND MAL CONVULSION
     Route: 048
     Dates: start: 20111105, end: 20111109
  8. E KEPPRA [Suspect]
     Indication: MYOCLONIC EPILEPSY
     Route: 048
     Dates: start: 20111105, end: 20111109
  9. E KEPPRA [Suspect]
     Indication: GRAND MAL CONVULSION
     Route: 048
     Dates: start: 20110930, end: 20111104
  10. E KEPPRA [Suspect]
     Indication: MYOCLONIC EPILEPSY
     Route: 048
     Dates: start: 20110930, end: 20111104
  11. E KEPPRA [Suspect]
     Indication: GRAND MAL CONVULSION
     Route: 048
     Dates: start: 20110922, end: 20110929
  12. E KEPPRA [Suspect]
     Indication: MYOCLONIC EPILEPSY
     Route: 048
     Dates: start: 20110922, end: 20110929
  13. LAMICTAL [Concomitant]
     Indication: MYOCLONIC EPILEPSY
     Dosage: DAILY DOSE: 250 MG
     Route: 048
  14. LAMICTAL [Concomitant]
     Indication: GRAND MAL CONVULSION
     Dosage: DAILY DOSE: 250 MG
     Route: 048
  15. MYSTAN [Concomitant]
     Indication: GRAND MAL CONVULSION
     Dosage: DAILY DOSE: 15 MG
     Route: 048
  16. MYSTAN [Concomitant]
     Indication: MYOCLONIC EPILEPSY
     Dosage: DAILY DOSE: 15 MG
     Route: 048
  17. RISPERDAL [Concomitant]
     Dosage: DAILY DOSE: 4 MG
     Route: 048
     Dates: end: 20111216
  18. DEPAS [Concomitant]
     Dosage: DAILY DOSE: 1 MG
     Route: 048
     Dates: end: 20111216
  19. ALEVIATIN [Concomitant]
     Indication: GRAND MAL CONVULSION
     Dosage: DAILY DOSE: 200 MG
     Route: 048

REACTIONS (1)
  - Respiratory arrest [Fatal]
